FAERS Safety Report 6308071-2 (Version None)
Quarter: 2009Q3

REPORT INFORMATION
  Report Type: 
  Country: None (occurrence: None)
  Receive Date: 20090813
  Receipt Date: 20090805
  Transmission Date: 20100115
  Serious: Yes (Hospitalization)
  Sender: FDA-Public Use
  Company Number: B0588251A

PATIENT
  Sex: Male

DRUGS (7)
  1. ZINACEF [Suspect]
     Indication: URINARY TRACT INFECTION
     Route: 042
     Dates: start: 20090501, end: 20090501
  2. CIPROFLOXACIN HCL [Suspect]
     Indication: URINARY TRACT INFECTION
     Route: 048
     Dates: start: 20090501, end: 20090501
  3. UNKNOWN MEDICATION [Concomitant]
  4. SERETIDE [Concomitant]
  5. ACETAMINOPHEN W/ CODEINE [Concomitant]
  6. BETOLVEX [Concomitant]
  7. ASPIRIN [Concomitant]

REACTIONS (4)
  - ADVERSE DRUG REACTION [None]
  - FEELING HOT [None]
  - RASH PRURITIC [None]
  - URTICARIA [None]
